FAERS Safety Report 17252229 (Version 6)
Quarter: 2021Q2

REPORT INFORMATION
  Report Type: Spontaneous
  Country: US (occurrence: US)
  Receive Date: 20200109
  Receipt Date: 20210427
  Transmission Date: 20210716
  Serious: No
  Sender: FDA-Public Use
  Company Number: US-PFIZER INC-2020007153

PATIENT
  Age: 88 Year
  Sex: Male
  Weight: 67.12 kg

DRUGS (2)
  1. VYNDAQEL [Suspect]
     Active Substance: TAFAMIDIS MEGLUMINE
     Indication: PRIMARY AMYLOIDOSIS
     Dosage: 80 MG, 1X/DAY(20MG 4XONCE A DAY)
     Route: 048
  2. LASIX [Concomitant]
     Active Substance: FUROSEMIDE
     Dosage: 80 MG, DAILY (DAILY BY MOUTH IN THE MORNING.  )
     Route: 048

REACTIONS (4)
  - Off label use [Unknown]
  - Dyspnoea [Not Recovered/Not Resolved]
  - Somnolence [Not Recovered/Not Resolved]
  - Product dose omission issue [Unknown]

NARRATIVE: CASE EVENT DATE: 20200212
